FAERS Safety Report 7729053-X (Version None)
Quarter: 2011Q3

REPORT INFORMATION
  Report Type: 
  Country: None (occurrence: None)
  Receive Date: 20110906
  Receipt Date: 20110825
  Transmission Date: 20111222
  Serious: Yes (Hospitalization, Other)
  Sender: FDA-Public Use
  Company Number: US-BAYER-201042069NA

PATIENT
  Age: 36 Year
  Sex: Female
  Weight: 54.422 kg

DRUGS (5)
  1. PREVACID [Concomitant]
     Dosage: UNK UNK, BID
     Dates: start: 20081003
  2. YASMIN [Suspect]
     Dosage: UNK
     Route: 048
     Dates: start: 20060310, end: 20070701
  3. YAZ [Suspect]
     Dosage: UNK
     Route: 048
     Dates: start: 20080924
  4. AMOXICILLIN [Concomitant]
     Dosage: UNK
     Dates: start: 20081006
  5. ERYTHROMYCIN [Concomitant]
     Dosage: UNK
     Dates: start: 20081006

REACTIONS (14)
  - GASTRITIS [None]
  - VOMITING [None]
  - NAUSEA [None]
  - HAEMANGIOMA OF LIVER [None]
  - ABDOMINAL PAIN UPPER [None]
  - TWIN PREGNANCY [None]
  - MATERNAL DRUGS AFFECTING FOETUS [None]
  - VULVOVAGINAL BURNING SENSATION [None]
  - BRADYCARDIA [None]
  - ABORTION SPONTANEOUS [None]
  - CHOLECYSTITIS CHRONIC [None]
  - PREGNANCY [None]
  - INTRA-UTERINE DEATH [None]
  - ESCHERICHIA VAGINITIS [None]
